FAERS Safety Report 24112899 (Version 1)
Quarter: 2024Q3

REPORT INFORMATION
  Report Type: Spontaneous
  Country: US (occurrence: US)
  Receive Date: 20240719
  Receipt Date: 20240719
  Transmission Date: 20241016
  Serious: No
  Sender: UPSHER-SMITH
  Company Number: US-UPSHER-SMITH LABORATORIES, LLC-2023USL00883

PATIENT
  Sex: Male

DRUGS (4)
  1. TESTOSTERONE [Suspect]
     Active Substance: TESTOSTERONE
     Indication: Hypogonadism
     Dosage: 50 MG (1 TUBE), 2X/DAY
     Route: 061
     Dates: end: 2023
  2. TESTOSTERONE [Suspect]
     Active Substance: TESTOSTERONE
     Dosage: 50 MG (1 TUBE), 2X/DAY
     Route: 061
     Dates: start: 2023, end: 2023
  3. TESTOSTERONE [Suspect]
     Active Substance: TESTOSTERONE
     Dosage: 50 MG (1 TUBE), 1X/DAY
     Route: 061
     Dates: start: 2023, end: 2023
  4. UNSPECIFIED INGREDIENT [Concomitant]
     Active Substance: UNSPECIFIED INGREDIENT
     Dosage: UNK

REACTIONS (5)
  - Palpitations [Recovered/Resolved]
  - Agitation [Recovered/Resolved]
  - Heart rate increased [Recovered/Resolved]
  - Blood testosterone increased [Recovering/Resolving]
  - Insomnia [Recovered/Resolved]

NARRATIVE: CASE EVENT DATE: 20230101
